FAERS Safety Report 11866181 (Version 2)
Quarter: 2017Q1

REPORT INFORMATION
  Report Type: Report from Study
  Country: US (occurrence: US)
  Receive Date: 20151223
  Receipt Date: 20170201
  Transmission Date: 20170428
  Serious: No
  Sender: FDA-Public Use
  Company Number: US-EXELIXIS-CABO-15005785

PATIENT
  Sex: Male

DRUGS (3)
  1. WARFARIN [Concomitant]
     Active Substance: WARFARIN
  2. COMETRIQ [Suspect]
     Active Substance: CABOZANTINIB S-MALATE
     Indication: RENAL CANCER
     Dosage: 60 MG, QD
     Route: 048
     Dates: start: 20151009, end: 20151103
  3. COMETRIQ [Suspect]
     Active Substance: CABOZANTINIB S-MALATE
     Dosage: 60 MG, QOD
     Route: 048
     Dates: start: 20151104

REACTIONS (11)
  - Confusional state [Unknown]
  - Gait disturbance [Unknown]
  - Stomatitis [Recovered/Resolved]
  - Bruxism [Unknown]
  - Adverse drug reaction [Unknown]
  - Muscle spasms [Unknown]
  - Vomiting [Unknown]
  - Off label use [Unknown]
  - Swelling face [Recovering/Resolving]
  - Cough [Unknown]
  - Lip swelling [Unknown]
